FAERS Safety Report 6695083-2 (Version None)
Quarter: 2010Q2

REPORT INFORMATION
  Report Type: 
  Country: None (occurrence: None)
  Receive Date: 20100423
  Receipt Date: 20100415
  Transmission Date: 20101027
  Serious: Yes (Other)
  Sender: FDA-Public Use
  Company Number: PHHY2010US24673

PATIENT
  Sex: Female

DRUGS (1)
  1. RECLAST [Suspect]
     Dosage: UNK
     Dates: start: 20100131

REACTIONS (4)
  - ASTHMA [None]
  - BRONCHITIS [None]
  - GINGIVAL PAIN [None]
  - LARYNGITIS [None]
